FAERS Safety Report 5122717-6 (Version None)
Quarter: 2006Q4

REPORT INFORMATION
  Report Type: 
  Country: None (occurrence: None)
  Receive Date: 20061005
  Receipt Date: 20061005
  Transmission Date: 20070319
  Serious: Yes (Hospitalization, Disabling)
  Sender: FDA-Public Use
  Company Number: None

PATIENT
  Age: 42 Year
  Sex: Female
  Weight: 82.5547 kg

DRUGS (1)
  1. VIOXX [Suspect]
     Dosage: 25 MG , 30 ONCE DAILY
     Dates: start: 19900101

REACTIONS (10)
  - ARTHRITIS [None]
  - ASTHENIA [None]
  - BALANCE DISORDER [None]
  - BLINDNESS [None]
  - CEREBROVASCULAR ACCIDENT [None]
  - DEPRESSION [None]
  - NAUSEA [None]
  - PSYCHIATRIC SYMPTOM [None]
  - SOMNOLENCE [None]
  - THINKING ABNORMAL [None]
